FAERS Safety Report 10057225 (Version 2)
Quarter: 2014Q2

REPORT INFORMATION
  Report Type: Report from Study
  Country: AU (occurrence: AU)
  Receive Date: 20140403
  Receipt Date: 20140516
  Transmission Date: 20141212
  Serious: Yes (Disabling)
  Sender: FDA-Public Use
  Company Number: AU-BRISTOL-MYERS SQUIBB COMPANY-20566246

PATIENT
  Age: 54 Year
  Sex: Female

DRUGS (10)
  1. ORENCIA [Suspect]
     Indication: RHEUMATOID ARTHRITIS
     Route: 042
     Dates: start: 20131127, end: 20140417
  2. CORTISONE [Suspect]
  3. PREDNISONE [Concomitant]
  4. METHOTREXATE [Concomitant]
  5. ENDEP [Concomitant]
  6. ZOLOFT [Concomitant]
  7. MOBIC [Concomitant]
  8. ZANTAC [Concomitant]
  9. TRAMAL [Concomitant]
  10. PANADOL [Concomitant]

REACTIONS (2)
  - Joint dislocation [Not Recovered/Not Resolved]
  - Drug ineffective [Not Recovered/Not Resolved]
